FAERS Safety Report 16254374 (Version 1)
Quarter: 2019Q2

REPORT INFORMATION
  Report Type: Spontaneous
  Country: US (occurrence: US)
  Receive Date: 20190326
  Receipt Date: 20190326
  Transmission Date: 20190711
  Serious: Yes (Hospitalization, Other)
  Sender: FDA-Public Use
  Company Number: None

PATIENT
  Age: 25 Year
  Sex: Male
  Weight: 97.07 kg

DRUGS (5)
  1. CLOBAZAM. [Suspect]
     Active Substance: CLOBAZAM
     Indication: SEIZURE
     Route: 048
     Dates: start: 20190123
  2. VIMPAT [Concomitant]
     Active Substance: LACOSAMIDE
  3. ONFI [Concomitant]
     Active Substance: CLOBAZAM
  4. FYCOMPA [Concomitant]
     Active Substance: PERAMPANEL
  5. DIAZEPAM. [Concomitant]
     Active Substance: DIAZEPAM

REACTIONS (3)
  - Seizure [None]
  - Product substitution issue [None]
  - Treatment failure [None]

NARRATIVE: CASE EVENT DATE: 20190324
